FAERS Safety Report 11275172 (Version 1)
Quarter: 2015Q3

REPORT INFORMATION
  Report Type: Spontaneous
  Country: US (occurrence: US)
  Receive Date: 20150716
  Receipt Date: 20150716
  Transmission Date: 20151125
  Serious: No
  Sender: FDA-Public Use
  Company Number: US-DRREDDYS-USA/USA/15/0047437

PATIENT
  Sex: Male

DRUGS (2)
  1. ZENATANE [Suspect]
     Active Substance: ISOTRETINOIN
     Indication: FOLLICULITIS
     Route: 048
     Dates: start: 20150210, end: 201504
  2. ZENATANE [Suspect]
     Active Substance: ISOTRETINOIN
     Indication: ACNE

REACTIONS (2)
  - Impaired healing [Unknown]
  - Dry skin [Unknown]
